FAERS Safety Report 9554548 (Version 3)
Quarter: 2013Q4

REPORT INFORMATION
  Report Type: Spontaneous
  Country: US (occurrence: US)
  Receive Date: 20130925
  Receipt Date: 20131024
  Transmission Date: 20140711
  Serious: Yes (Death, Hospitalization, Other)
  Sender: FDA-Public Use
  Company Number: US-TMC-CABO-13003338

PATIENT
  Age: 49 Year
  Sex: Female
  Weight: 74 kg

DRUGS (13)
  1. COMETRIQ [Suspect]
     Indication: THYROID CANCER
     Dosage: 140 MG, QD
     Route: 048
     Dates: start: 20130502, end: 20130703
  2. COMETRIQ [Suspect]
     Dosage: 100 MG, QD
     Route: 048
     Dates: start: 20130731, end: 20130823
  3. BACLOFEN [Concomitant]
  4. FLEXERIL [Concomitant]
  5. DECADRON [Concomitant]
  6. DURAGESIC [Concomitant]
  7. GABAPENTIN [Concomitant]
  8. LIDOCAINE HCL [Concomitant]
  9. MOBIC [Concomitant]
  10. MORPHINE [Concomitant]
  11. PROTONIX [Concomitant]
  12. SENOKOT [Concomitant]
  13. COLACE [Concomitant]

REACTIONS (2)
  - Pain [Unknown]
  - Malignant neoplasm progression [Fatal]
